FAERS Safety Report 5494317-X (Version None)
Quarter: 2007Q4

REPORT INFORMATION
  Report Type: 
  Country: None (occurrence: None)
  Receive Date: 20071015
  Receipt Date: 20070803
  Transmission Date: 20080405
  Serious: No
  Sender: FDA-Public Use
  Company Number: 2007SP002739

PATIENT
  Age: 32 Year
  Sex: Female
  Weight: 70.3075 kg

DRUGS (6)
  1. LUNESTA [Suspect]
     Indication: INSOMNIA
     Dosage: 3 MG;HS;ORAL
     Route: 048
     Dates: start: 20070801
  2. TRAMADOL HCL [Concomitant]
  3. CYMBALTA [Concomitant]
  4. ALLEGRA [Concomitant]
  5. HYDROXYZINE [Concomitant]
  6. FIORICET [Concomitant]

REACTIONS (3)
  - FEELING COLD [None]
  - INSOMNIA [None]
  - PAROSMIA [None]
